FAERS Safety Report 16797958 (Version 2)
Quarter: 2020Q2

REPORT INFORMATION
  Report Type: Spontaneous
  Country: FR (occurrence: FR)
  Receive Date: 20190912
  Receipt Date: 20200415
  Transmission Date: 20200713
  Serious: Yes (Other)
  Sender: FDA-Public Use
  Company Number: FR-AUROBINDO-AUR-APL-2019-059256

PATIENT
  Age: 45 Year
  Sex: Male

DRUGS (6)
  1. DIPIPERON [Suspect]
     Active Substance: PIPAMPERONE
     Indication: MENTAL DISORDER
     Dosage: UNK
     Route: 048
     Dates: start: 201508
  2. DECAPEPTYL (GONADORELIN) [Suspect]
     Active Substance: GONADORELIN
     Indication: IMPULSE-CONTROL DISORDER
     Dosage: 1 DOSAGE FORM, FOR 3 MONTHS
     Route: 030
     Dates: start: 20131001
  3. DEPAMIDE [Suspect]
     Active Substance: VALPROMIDE
     Indication: MENTAL DISORDER
     Dosage: UNK
     Route: 048
     Dates: start: 201310, end: 201907
  4. OLANZAPINE. [Suspect]
     Active Substance: OLANZAPINE
     Indication: MENTAL DISORDER
     Dosage: UNK
     Route: 048
     Dates: start: 201305, end: 201605
  5. ANDROCUR [Suspect]
     Active Substance: CYPROTERONE ACETATE
     Indication: IMPULSE-CONTROL DISORDER
     Dosage: 100 MILLIGRAM, ONCE A DAY
     Route: 048
     Dates: start: 201311, end: 201907
  6. HALDOL DECANOAS [Suspect]
     Active Substance: HALOPERIDOL DECANOATE
     Indication: MENTAL DISORDER
     Dosage: UNK
     Route: 030
     Dates: start: 201010, end: 201810

REACTIONS (1)
  - Meningioma [Not Recovered/Not Resolved]

NARRATIVE: CASE EVENT DATE: 201907
